FAERS Safety Report 6395033-2 (Version None)
Quarter: 2009Q4

REPORT INFORMATION
  Report Type: 
  Country: None (occurrence: None)
  Receive Date: 20091009
  Receipt Date: 20090930
  Transmission Date: 20100525
  Serious: Yes (Other)
  Sender: FDA-Public Use
  Company Number: US-ASTRAZENECA-2009SE11145

PATIENT
  Age: 668 Month
  Sex: Female
  Weight: 74.8 kg

DRUGS (5)
  1. ENTECORT EC [Suspect]
     Indication: COLITIS COLLAGENOUS
     Route: 048
     Dates: start: 20050101, end: 20090601
  2. DESMOPRESSIN ACETATE [Concomitant]
     Indication: DIABETES INSIPIDUS
  3. VITAMINS WITH IRON [Concomitant]
  4. LACTASE [Concomitant]
  5. METROGEL [Concomitant]
     Indication: ROSACEA

REACTIONS (1)
  - DIABETES INSIPIDUS [None]
